FAERS Safety Report 4300324-2 (Version None)
Quarter: 2004Q1

REPORT INFORMATION
  Report Type: 
  Country: None (occurrence: None)
  Receive Date: 20040218
  Receipt Date: 20040218
  Transmission Date: 20041129
  Serious: Yes (Other)
  Sender: FDA-Public Use
  Company Number: None

PATIENT
  Sex: Male
  Weight: 74.8435 kg

DRUGS (1)
  1. SOTRET [Suspect]
     Indication: ACNE
     Dosage: 40 MG DAILY ORAL
     Route: 048

REACTIONS (3)
  - ABNORMAL DREAMS [None]
  - ALOPECIA [None]
  - HYPOTRICHOSIS [None]
